FAERS Safety Report 8885739 (Version 2)
Quarter: 2013Q2

REPORT INFORMATION
  Report Type: Spontaneous
  Country: BR (occurrence: BR)
  Receive Date: 20121101
  Receipt Date: 20130507
  Transmission Date: 20140414
  Serious: Yes (Other)
  Sender: FDA-Public Use
  Company Number: BR-AMGEN-BRASP2012069673

PATIENT
  Age: 68 Year
  Sex: Male
  Weight: 173 kg

DRUGS (4)
  1. ENBREL [Suspect]
     Indication: PSORIASIS
     Dosage: 50 MG, 1X/WEEK
     Route: 058
     Dates: start: 200811, end: 20121017
  2. ENBREL [Suspect]
     Dosage: 50 MG, QWK
     Route: 058
     Dates: end: 201212
  3. ATENOLOL [Concomitant]
     Dosage: UNK
  4. CAPTOPRIL [Concomitant]
     Dosage: STRENGTH 25MG

REACTIONS (1)
  - Prostate cancer [Unknown]
